FAERS Safety Report 20097306 (Version 1)
Quarter: 2021Q4

REPORT INFORMATION
  Report Type: Report from Study
  Country: US (occurrence: US)
  Receive Date: 20211122
  Receipt Date: 20211122
  Transmission Date: 20220303
  Serious: Yes (Hospitalization, Other)
  Sender: FDA-Public Use
  Company Number: US-BRISTOL-MYERS SQUIBB COMPANY-BMS-2021-123568

PATIENT
  Age: 55 Year
  Sex: Female
  Weight: 132 kg

DRUGS (3)
  1. NIVOLUMAB [Suspect]
     Active Substance: NIVOLUMAB
     Indication: Uterine leiomyosarcoma
     Dosage: 3 MILLIGRAM/KILOGRAM, Q3WK
     Route: 042
     Dates: start: 20211102
  2. IPILIMUMAB [Suspect]
     Active Substance: IPILIMUMAB
     Indication: Uterine leiomyosarcoma
     Dosage: 1 MILLIGRAM/KILOGRAM, Q3WK
     Route: 042
     Dates: start: 20211102
  3. CABOZANTINIB [Suspect]
     Active Substance: CABOZANTINIB
     Indication: Uterine leiomyosarcoma
     Dosage: 40 MILLIGRAM, QD
     Route: 048
     Dates: start: 20211102, end: 20211111

REACTIONS (3)
  - Encephalopathy [Unknown]
  - Hypotension [Unknown]
  - Fatigue [Unknown]

NARRATIVE: CASE EVENT DATE: 20211112
